FAERS Safety Report 10192428 (Version 1)
Quarter: 2014Q2

REPORT INFORMATION
  Report Type: Spontaneous
  Country: GB (occurrence: GB)
  Receive Date: 20140523
  Receipt Date: 20140523
  Transmission Date: 20141212
  Serious: Yes (Other)
  Sender: FDA-Public Use
  Company Number: GB-BRISTOL-MYERS SQUIBB COMPANY-20765061

PATIENT
  Sex: Female

DRUGS (1)
  1. BARACLUDE [Suspect]
     Indication: HEPATITIS B
     Dosage: DOSE REDUCED: EVERY 5 DAYS
     Dates: start: 201311

REACTIONS (1)
  - Renal impairment [Unknown]
